FAERS Safety Report 21077127 (Version 2)
Quarter: 2022Q3

REPORT INFORMATION
  Report Type: Spontaneous
  Country: AU (occurrence: AU)
  Receive Date: 20220713
  Receipt Date: 20220715
  Transmission Date: 20221027
  Serious: Yes (Other)
  Sender: FDA-Public Use
  Company Number: AU-PFIZER INC-202200772294

PATIENT
  Age: 51 Year
  Sex: Male
  Weight: 74 kg

DRUGS (6)
  1. PRISTIQ EXTENDED-RELEASE [Suspect]
     Active Substance: DESVENLAFAXINE SUCCINATE
     Indication: Depression
     Dosage: UNK (LOWER DOSES FOR MAY BE 4 YEARS)
  2. PRISTIQ EXTENDED-RELEASE [Suspect]
     Active Substance: DESVENLAFAXINE SUCCINATE
     Dosage: 150 MG, 1X/DAY
  3. PALEXIA [Concomitant]
     Active Substance: TAPENTADOL HYDROCHLORIDE
     Indication: Pain management
     Dosage: UNK (ONLY TAKEN WHEN NEEDED AND GO LONG PERIODS WITHOUT)
  4. LANSOPRAZOLE [Concomitant]
     Active Substance: LANSOPRAZOLE
     Indication: Gastrooesophageal reflux disease
     Dosage: UNK (OCCASSIONAL USE)
  5. ZYRTEC [Concomitant]
     Active Substance: CETIRIZINE HYDROCHLORIDE
     Indication: Seasonal allergy
     Dosage: UNK, AS NEEDED
  6. TADALAFIL [Concomitant]
     Active Substance: TADALAFIL
     Indication: Erectile dysfunction
     Dosage: UNK (VERY VERY OCCASIONAL USE)

REACTIONS (9)
  - Serotonin syndrome [Not Recovered/Not Resolved]
  - Suicidal ideation [Unknown]
  - Erectile dysfunction [Unknown]
  - Drug ineffective [Unknown]
  - Off label use [Unknown]
  - Product dose omission issue [Unknown]
  - Mood altered [Not Recovered/Not Resolved]
  - Electric shock sensation [Unknown]
  - Malaise [Unknown]
